FAERS Safety Report 9761221 (Version 1)
Quarter: 2013Q4

REPORT INFORMATION
  Report Type: Spontaneous
  Country: US (occurrence: US)
  Receive Date: 20131216
  Receipt Date: 20131216
  Transmission Date: 20140711
  Serious: Yes (Other)
  Sender: FDA-Public Use
  Company Number: US-PFIZER INC-2013359713

PATIENT
  Sex: Male

DRUGS (1)
  1. LYRICA [Suspect]
     Indication: ARTHRITIS
     Dosage: 50 MG, 4X/DAY

REACTIONS (7)
  - Off label use [Unknown]
  - Neoplasm malignant [Unknown]
  - Ear disorder [Unknown]
  - Hypoacusis [Unknown]
  - Hypersensitivity [Unknown]
  - Feeling abnormal [Not Recovered/Not Resolved]
  - Headache [Unknown]
